FAERS Safety Report 9330029 (Version 2)
Quarter: 2013Q2

REPORT INFORMATION
  Report Type: Spontaneous
  Country: NL (occurrence: NL)
  Receive Date: 20130604
  Receipt Date: 20130604
  Transmission Date: 20140414
  Serious: Yes (Hospitalization)
  Sender: FDA-Public Use
  Company Number: NL-ABBOTT-13P-114-1097690-00

PATIENT
  Age: 32 Year
  Sex: Male

DRUGS (6)
  1. RITONAVIR [Suspect]
     Indication: HIV INFECTION
     Route: 048
  2. TRIAMCINOLONACETONIDE [Interacting]
     Indication: ARTHROPATHY
     Route: 014
  3. TRIAMCINOLONACETONIDE [Interacting]
     Indication: PAIN
  4. ATAZANAVIR [Interacting]
     Indication: HIV INFECTION
     Route: 048
  5. TENOFOVIR [Interacting]
     Indication: HIV INFECTION
     Route: 048
  6. EMTRICITABINE [Interacting]
     Indication: HIV INFECTION
     Route: 048

REACTIONS (5)
  - Pulmonary embolism [Unknown]
  - Cushing^s syndrome [Recovered/Resolved]
  - Drug interaction [Unknown]
  - Hypogonadism [Recovered/Resolved]
  - Toxicity to various agents [Recovered/Resolved]
